FAERS Safety Report 8067603-7 (Version None)
Quarter: 2012Q1

REPORT INFORMATION
  Report Type: 
  Country: None (occurrence: None)
  Receive Date: 20120124
  Receipt Date: 20120117
  Transmission Date: 20120608
  Serious: Yes (Death, Life-Threatening, Hospitalization)
  Sender: FDA-Public Use
  Company Number: JP-ROCHE-1032244

PATIENT
  Sex: Female

DRUGS (14)
  1. NEUART [Concomitant]
     Indication: PROPHYLAXIS
     Route: 042
     Dates: start: 20050928, end: 20050930
  2. MYCOPHENOLATE MOFETIL (CELLCEPT) [Suspect]
     Route: 048
     Dates: start: 20051007, end: 20051007
  3. MYCOPHENOLATE MOFETIL (CELLCEPT) [Suspect]
     Route: 048
     Dates: start: 20060120, end: 20060126
  4. GANCICLOVIR [Concomitant]
     Indication: PROPHYLAXIS
     Dosage: 145-280MG/DAY
     Route: 042
     Dates: start: 20050928, end: 20051007
  5. CLINDAMYCIN [Concomitant]
     Indication: PROPHYLAXIS
     Route: 042
     Dates: start: 20050928, end: 20050930
  6. FUNGUARD [Concomitant]
     Indication: PROPHYLAXIS
     Route: 042
     Dates: start: 20050928, end: 20051011
  7. MYCOPHENOLATE MOFETIL (CELLCEPT) [Suspect]
     Route: 048
     Dates: start: 20051008, end: 20051009
  8. TACROLIMUS [Suspect]
     Indication: PROPHYLAXIS AGAINST TRANSPLANT REJECTION
     Dosage: 0.6-8MG/DAY
     Route: 048
     Dates: start: 20051020, end: 20060120
  9. MYCOPHENOLATE MOFETIL (CELLCEPT) [Suspect]
     Indication: PROPHYLAXIS AGAINST TRANSPLANT REJECTION
     Route: 048
     Dates: start: 20050928, end: 20051006
  10. SANDIMMUNE [Concomitant]
     Indication: PROPHYLAXIS AGAINST TRANSPLANT REJECTION
     Dosage: 75-500MG/DAY
     Route: 048
     Dates: start: 20050928, end: 20051020
  11. FLUMARIN [Concomitant]
     Indication: PROPHYLAXIS
     Route: 042
     Dates: start: 20050928, end: 20050930
  12. METHYLPREDNISOLONE SODIUM SUCCINATE [Suspect]
     Indication: PROPHYLAXIS AGAINST TRANSPLANT REJECTION
     Dosage: 10-500MG/DAY
     Route: 042
     Dates: start: 20050928, end: 20060126
  13. URSO 250 [Concomitant]
     Indication: PROPHYLAXIS
     Route: 048
     Dates: end: 20060116
  14. SULFAMETHOXAZOLE [Concomitant]
     Indication: PROPHYLAXIS
     Route: 048
     Dates: start: 20050928, end: 20051011

REACTIONS (5)
  - HEPATITIS [None]
  - BACTERAEMIA [None]
  - HEPATIC FAILURE [None]
  - ACUTE RESPIRATORY FAILURE [None]
  - MULTI-ORGAN FAILURE [None]
